FAERS Safety Report 9588686 (Version 1)
Quarter: 2013Q4

REPORT INFORMATION
  Report Type: Spontaneous
  Country: US (occurrence: US)
  Receive Date: 20131003
  Receipt Date: 20131003
  Transmission Date: 20140711
  Serious: No
  Sender: FDA-Public Use
  Company Number: US-AMGEN-USASP2012065577

PATIENT
  Sex: Female

DRUGS (5)
  1. ENBREL [Suspect]
     Indication: PRODUCT USED FOR UNKNOWN INDICATION
     Dosage: 50 MG, QWK
     Route: 058
  2. PLAQUENIL                          /00072603/ [Concomitant]
     Dosage: 200 MG, UNK
  3. VOLTAREN                           /00372301/ [Concomitant]
     Dosage: 75 MG, UNK
  4. ALBUTEROL                          /00139501/ [Concomitant]
     Dosage: 90 MUG, UNK
  5. CLARITIN                           /00413701/ [Concomitant]
     Dosage: 10 MG, UNK

REACTIONS (1)
  - Abdominal pain upper [Unknown]
